FAERS Safety Report 10076346 (Version 2)
Quarter: 2014Q2

REPORT INFORMATION
  Report Type: Spontaneous
  Country: US (occurrence: None)
  Receive Date: 20140410
  Receipt Date: 20140502
  Transmission Date: 20141212
  Serious: Yes (Hospitalization)
  Sender: FDA-Public Use
  Company Number: UTC-046748

PATIENT
  Age: 66 Year
  Sex: Female
  Weight: 158.3 kg

DRUGS (5)
  1. REMODULIN [Suspect]
     Indication: PULMONARY ARTERIAL HYPERTENSION
     Dosage: 31.32 UG/KG (0.02175 UG/KG, 1 IN 1 MIN),SUBCUTANEOUS
     Route: 058
     Dates: start: 20091015
  2. TYVASO [Suspect]
     Indication: PULMONARY ARTERIAL HYPERTENSION
     Route: 055
     Dates: start: 20100927
  3. REVATIO [Concomitant]
  4. WARFARIN [Concomitant]
  5. LETAIRIS [Concomitant]

REACTIONS (3)
  - Fistula [None]
  - Arteriovenous fistula [None]
  - Diarrhoea [None]
